FAERS Safety Report 17574058 (Version 1)
Quarter: 2020Q1

REPORT INFORMATION
  Report Type: Spontaneous
  Country: US (occurrence: US)
  Receive Date: 20200323
  Receipt Date: 20200323
  Transmission Date: 20200409
  Serious: Yes (Other)
  Sender: FDA-Public Use
  Company Number: US-ANIPHARMA-2020-US-005566

PATIENT
  Sex: Female

DRUGS (2)
  1. NIFEDIPINE. [Suspect]
     Active Substance: NIFEDIPINE
     Indication: HYPERTENSION
  2. TERBUTALINE SULFATE TABLETS USP (NON-SPECIFIC) [Suspect]
     Active Substance: TERBUTALINE SULFATE
     Indication: TOCOLYSIS

REACTIONS (2)
  - Premature separation of placenta [Unknown]
  - Foetal death [Unknown]
